FAERS Safety Report 4947676-8 (Version None)
Quarter: 2006Q1

REPORT INFORMATION
  Report Type: 
  Country: None (occurrence: None)
  Receive Date: 20060314
  Receipt Date: 20060303
  Transmission Date: 20060701
  Serious: Yes (Other)
  Sender: FDA-Public Use
  Company Number: 2006032489

PATIENT
  Sex: Female
  Weight: 127.0072 kg

DRUGS (9)
  1. NEURONTIN [Suspect]
     Indication: DIABETIC NEUROPATHY
     Dosage: 1800 MG (600 MG, 3 IN 1 D),
  2. NEURONTIN [Suspect]
     Indication: MULTIPLE SCLEROSIS
     Dosage: 1800 MG (600 MG, 3 IN 1 D),
  3. ALL OTHER THERAPEUTIC PRODUCTS (ALL OTHER THERAPEUTIC PRODUCTS) [Concomitant]
  4. INSULIN GLARGINE (INSULIN GLARGINE) [Concomitant]
  5. INSULIN HUMAN (INSULIN HUMAN) [Concomitant]
  6. DIURETICS (DIURETICS) [Concomitant]
  7. LIPITOR [Concomitant]
  8. ANTIHYPERTENSIVES (ANTIHYPERTENSIVES) [Concomitant]
  9. PLAVIX [Concomitant]

REACTIONS (6)
  - DRUG INEFFECTIVE [None]
  - FALL [None]
  - MEDICATION ERROR [None]
  - RENAL FAILURE [None]
  - RENAL PAIN [None]
  - UNEVALUABLE EVENT [None]
